FAERS Safety Report 6065372-3 (Version None)
Quarter: 2009Q1

REPORT INFORMATION
  Report Type: 
  Country: None (occurrence: None)
  Receive Date: 20090204
  Receipt Date: 20090129
  Transmission Date: 20090719
  Serious: Yes (Other)
  Sender: FDA-Public Use
  Company Number: US-PFIZER INC-2009162876

PATIENT
  Sex: Male
  Weight: 83.9 kg

DRUGS (3)
  1. DETROL LA [Suspect]
     Dates: start: 20090120, end: 20090129
  2. VITAMINS [Concomitant]
     Dosage: UNK
  3. ASPIRIN [Concomitant]
     Dosage: UNK

REACTIONS (4)
  - ABASIA [None]
  - ARTHRALGIA [None]
  - INSOMNIA [None]
  - PAIN [None]
